FAERS Safety Report 6665598-1 (Version None)
Quarter: 2010Q2

REPORT INFORMATION
  Report Type: 
  Country: None (occurrence: None)
  Receive Date: 20100402
  Receipt Date: 20100323
  Transmission Date: 20101027
  Serious: Yes (Hospitalization, Other)
  Sender: FDA-Public Use
  Company Number: JP-PFIZER INC-2010025988

PATIENT
  Age: 59 Year
  Sex: Female
  Weight: 53.2 kg

DRUGS (7)
  1. AZULFIDINE [Suspect]
     Indication: RHEUMATOID ARTHRITIS
     Dosage: 500 MG DAILY
     Route: 048
     Dates: start: 20080121
  2. AZULFIDINE [Suspect]
     Dosage: 500 MG, 2X/DAY
     Route: 048
     Dates: start: 20100101
  3. MUCOSTA [Concomitant]
     Dosage: UNK
     Route: 048
  4. FAMOGAST [Concomitant]
     Dosage: UNK
     Route: 048
  5. LIVALO [Concomitant]
     Dosage: UNK
  6. MONTELUKAST SODIUM [Concomitant]
     Dosage: UNK
     Route: 048
     Dates: start: 20100218
  7. SLO-BID [Concomitant]
     Dosage: UNK
     Route: 048
     Dates: start: 20100218

REACTIONS (2)
  - BRONCHIOLITIS [None]
  - EOSINOPHILIA [None]
